FAERS Safety Report 16189625 (Version 1)
Quarter: 2019Q2

REPORT INFORMATION
  Report Type: Spontaneous
  Country: US (occurrence: US)
  Receive Date: 20190411
  Receipt Date: 20190411
  Transmission Date: 20190711
  Serious: Yes (Hospitalization)
  Sender: FDA-Public Use
  Company Number: None

PATIENT
  Age: 64 Year
  Sex: Female

DRUGS (2)
  1. REPATHA [Suspect]
     Active Substance: EVOLOCUMAB
     Indication: HYPERLIPIDAEMIA
     Dosage: ?          OTHER FREQUENCY:EVERY 2 WEEKS;?
     Route: 058
     Dates: start: 20190120, end: 20190408
  2. REPATHA [Concomitant]
     Active Substance: EVOLOCUMAB
     Dates: start: 20190120, end: 20190408

REACTIONS (5)
  - Rash erythematous [None]
  - Rash generalised [None]
  - Dyspnoea [None]
  - Documented hypersensitivity to administered product [None]
  - Drug hypersensitivity [None]

NARRATIVE: CASE EVENT DATE: 20190408
